FAERS Safety Report 8153386-9 (Version None)
Quarter: 2012Q1

REPORT INFORMATION
  Report Type: 
  Country: None (occurrence: None)
  Receive Date: 20120221
  Receipt Date: 20120210
  Transmission Date: 20120608
  Serious: Yes (Hospitalization)
  Sender: FDA-Public Use
  Company Number: JP-ROCHE-1016424

PATIENT
  Sex: Female
  Weight: 12 kg

DRUGS (3)
  1. ROCEPHIN [Suspect]
     Indication: SEPSIS
     Dosage: DOSAGE IS UNCERTAIN.
     Route: 042
     Dates: start: 20111123, end: 20111123
  2. ROCEPHIN [Suspect]
     Route: 042
     Dates: start: 20111123, end: 20111123
  3. ACETAMINOPHEN [Suspect]
     Indication: PYREXIA
     Route: 054
     Dates: start: 20111124, end: 20111124

REACTIONS (1)
  - HEPATITIS ACUTE [None]
